FAERS Safety Report 13791760 (Version 12)
Quarter: 2017Q4

REPORT INFORMATION
  Report Type: Report from Study
  Country: US (occurrence: US)
  Receive Date: 20170725
  Receipt Date: 20171215
  Transmission Date: 20180320
  Serious: Yes (Hospitalization)
  Sender: FDA-Public Use
  Company Number: US-ACTELION-A-NJ2017-155741

PATIENT
  Age: 23 Year
  Sex: Female
  Weight: 74.38 kg

DRUGS (4)
  1. DIGOXIN. [Concomitant]
     Active Substance: DIGOXIN
     Dosage: 25 MCG, QD
  2. VELETRI [Suspect]
     Active Substance: EPOPROSTENOL
     Indication: PULMONARY ARTERIAL HYPERTENSION
     Dosage: 50 NG/KG, PER MIN
     Route: 042
     Dates: start: 201706
  3. REVATIO [Suspect]
     Active Substance: SILDENAFIL CITRATE
     Indication: PULMONARY ARTERIAL HYPERTENSION
     Dosage: 20 MG, QD
     Route: 065
  4. LASIX [Concomitant]
     Active Substance: FUROSEMIDE
     Dosage: 20 MG, QD

REACTIONS (28)
  - Staphylococcus test positive [Unknown]
  - Blister [Recovering/Resolving]
  - Nausea [Unknown]
  - Pain in jaw [Unknown]
  - Device infusion issue [Unknown]
  - Weight decreased [Unknown]
  - Flatulence [Unknown]
  - Device related infection [Unknown]
  - Skin disorder [Recovered/Resolved]
  - Device dislocation [Unknown]
  - Nasal oedema [Unknown]
  - Rash [Unknown]
  - Erythema [Recovering/Resolving]
  - Drug hypersensitivity [Unknown]
  - Swelling face [Recovered/Resolved]
  - Decreased appetite [Unknown]
  - Dermatitis contact [Recovered/Resolved]
  - Pruritus [Unknown]
  - Abdominal distension [Unknown]
  - Flushing [Unknown]
  - Catheter site vesicles [Unknown]
  - Diarrhoea [Unknown]
  - Catheter management [Unknown]
  - Device malfunction [Unknown]
  - Catheter site rash [Recovering/Resolving]
  - Abdominal discomfort [Unknown]
  - Catheter site pruritus [Recovered/Resolved]
  - Pyrexia [Unknown]

NARRATIVE: CASE EVENT DATE: 20170619
